FAERS Safety Report 11886232 (Version 3)
Quarter: 2016Q1

REPORT INFORMATION
  Report Type: Report from Study
  Country: SE (occurrence: SE)
  Receive Date: 20160104
  Receipt Date: 20160219
  Transmission Date: 20160526
  Serious: Yes (Hospitalization, Disabling)
  Sender: FDA-Public Use
  Company Number: SE-ASTELLAS-2015US044225

PATIENT
  Age: 77 Year
  Sex: Male

DRUGS (6)
  1. LEVOXIN [Concomitant]
     Indication: ABDOMINAL DISCOMFORT
     Route: 048
     Dates: start: 1978
  2. ALVEDON [Concomitant]
     Active Substance: ACETAMINOPHEN
     Indication: PAIN
     Dosage: 500 MG, INTERMITTENT
     Route: 048
     Dates: start: 201508
  3. ENZALUTAMIDE [Suspect]
     Active Substance: ENZALUTAMIDE
     Indication: PROSTATE CANCER
     Route: 048
     Dates: start: 20150519, end: 20151117
  4. KALCIPOS [Concomitant]
     Active Substance: CALCIUM CARBONATE
     Indication: PROPHYLAXIS
     Route: 048
     Dates: start: 2014
  5. LUMIGAN [Concomitant]
     Active Substance: BIMATOPROST
     Indication: GLAUCOMA
     Dosage: 0.1 MG/ML IN EYE DROP, TWICE DAILY
     Route: 050
     Dates: start: 2014
  6. PROCREN [Concomitant]
     Active Substance: LEUPROLIDE ACETATE
     Indication: PROSTATE CANCER
     Dosage: 11.25 UNK, EVERY 12 WEEKS
     Route: 058
     Dates: start: 2008

REACTIONS (2)
  - Vision blurred [Recovered/Resolved]
  - Normal pressure hydrocephalus [Recovered/Resolved]

NARRATIVE: CASE EVENT DATE: 20151118
